FAERS Safety Report 5165545-8 (Version None)
Quarter: 2006Q4

REPORT INFORMATION
  Report Type: 
  Country: None (occurrence: None)
  Receive Date: 20061206
  Receipt Date: 20061003
  Transmission Date: 20070319
  Serious: Yes (Hospitalization)
  Sender: FDA-Public Use
  Company Number: NZ-ROCHE-465453

PATIENT
  Age: 67 Year
  Sex: Male
  Weight: 62 kg

DRUGS (13)
  1. CAPECITABINE [Suspect]
     Indication: COLORECTAL CANCER
     Dosage: 3500 MG/M2 ADMINISTERED DAILY IN TWO DIVIDED DOSES ON DAYS 1-7 OF A 14 DAY CYCLE AS PER PROTOCOL. R+
     Route: 048
     Dates: start: 20060908
  2. BEVACIZUMAB [Suspect]
     Indication: COLORECTAL CANCER
     Dosage: 5MG/KG ADMINISTERED ON DAY 1 OF 14 DAY CYCLE AS PER PROTOCOL.
     Route: 042
     Dates: start: 20060908
  3. OXALIPLATIN [Suspect]
     Indication: COLORECTAL CANCER
     Dosage: 85 MG/M2 IV ADMINISTERED ON DAY 1 OF 14 DAY CYCLE AS PER PROTOCOL.
     Route: 042
     Dates: start: 20060908
  4. FLUCLOXACILLIN [Concomitant]
  5. OMEPRAZOLE [Concomitant]
  6. MAXOLON [Concomitant]
     Dates: start: 20061007, end: 20061007
  7. MYLANTA [Concomitant]
     Dates: start: 20061005, end: 20061014
  8. LOSEC [Concomitant]
     Dates: start: 20061005, end: 20061013
  9. LOPERAMIDE [Concomitant]
     Dates: start: 20061005, end: 20061013
  10. FLUCLOXACILLIN [Concomitant]
     Dates: start: 20061006, end: 20061007
  11. CODEINE PHOSPHATE [Concomitant]
     Dates: start: 20061006, end: 20061012
  12. ACETAMINOPHEN [Concomitant]
     Dates: start: 20061007, end: 20061014
  13. CEFTRIAXONE [Concomitant]
     Dates: start: 20061007, end: 20061007

REACTIONS (2)
  - COLITIS [None]
  - RENAL FAILURE [None]
